FAERS Safety Report 5122733-4 (Version None)
Quarter: 2006Q4

REPORT INFORMATION
  Report Type: 
  Country: None (occurrence: None)
  Receive Date: 20061004
  Receipt Date: 20061003
  Transmission Date: 20070319
  Serious: Yes (Death)
  Sender: FDA-Public Use
  Company Number: 2006-154DP

PATIENT
  Age: 30 Day
  Sex: Female
  Weight: 2 kg

DRUGS (1)
  1. NAPROXEN SODIUM [Suspect]
     Indication: MYALGIA
     Dosage: 1100 MG, DAY

REACTIONS (8)
  - CAESAREAN SECTION [None]
  - DRUG EXPOSURE DURING PREGNANCY [None]
  - FOETAL GROWTH RETARDATION [None]
  - KIDNEY MALFORMATION [None]
  - OLIGOHYDRAMNIOS [None]
  - PLACENTAL DISORDER [None]
  - PREMATURE BABY [None]
  - RENAL TUBULAR DISORDER [None]
